FAERS Safety Report 7825664-1 (Version None)
Quarter: 2011Q4

REPORT INFORMATION
  Report Type: 
  Country: None (occurrence: None)
  Receive Date: 20111017
  Receipt Date: 20110929
  Transmission Date: 20120403
  Serious: Yes (Hospitalization)
  Sender: FDA-Public Use
  Company Number: 2011PROUSA00656

PATIENT
  Age: 77 Year
  Sex: Male
  Weight: 71.7 kg

DRUGS (8)
  1. AMLODIPINE [Concomitant]
  2. PROVENGE [Suspect]
     Indication: PROSTATE CANCER METASTATIC
     Dosage: 250 ML, SINGLE, INTRAVENOUS
     Route: 042
     Dates: start: 20110815, end: 20110815
  3. PROVENGE [Suspect]
     Indication: PROSTATE CANCER METASTATIC
     Dosage: 250 ML, SINGLE, INTRAVENOUS
     Route: 042
     Dates: start: 20110801, end: 20110801
  4. LUPRON [Concomitant]
  5. CASODEX [Concomitant]
  6. PROVENGE [Suspect]
  7. METOPROLOL TARTRATE [Concomitant]
  8. SIMVASTATIN [Concomitant]

REACTIONS (5)
  - DEVICE RELATED INFECTION [None]
  - KIDNEY INFECTION [None]
  - LETHARGY [None]
  - RENAL FAILURE [None]
  - DIZZINESS [None]
